FAERS Safety Report 19331356 (Version 2)
Quarter: 2021Q3

REPORT INFORMATION
  Report Type: Spontaneous
  Country: US (occurrence: US)
  Receive Date: 20210528
  Receipt Date: 20210903
  Transmission Date: 20211014
  Serious: No
  Sender: FDA-Public Use
  Company Number: US-PURDUE-USA-2021-0258298

PATIENT
  Sex: Female

DRUGS (1)
  1. ADHANSIA XR [Suspect]
     Active Substance: METHYLPHENIDATE HYDROCHLORIDE
     Indication: PRODUCT USED FOR UNKNOWN INDICATION
     Dosage: 25 MG, UNK
     Route: 048
     Dates: start: 20210503

REACTIONS (3)
  - Headache [Unknown]
  - Abdominal discomfort [Unknown]
  - Insomnia [Unknown]
